FAERS Safety Report 8350853-X (Version None)
Quarter: 2012Q2

REPORT INFORMATION
  Report Type: 
  Country: None (occurrence: None)
  Receive Date: 20120510
  Receipt Date: 20120506
  Transmission Date: 20120825
  Serious: Yes (Hospitalization, Other)
  Sender: FDA-Public Use
  Company Number: US-ROCHE-1066283

PATIENT
  Age: 64 Year
  Sex: Female
  Weight: 68.1 kg

DRUGS (1)
  1. XELODA [Suspect]
     Indication: BREAST CANCER METASTATIC
     Route: 048

REACTIONS (4)
  - SCAB [None]
  - RASH MACULAR [None]
  - CONVULSION [None]
  - OEDEMA PERIPHERAL [None]
